FAERS Safety Report 14963679 (Version 1)
Quarter: 2018Q2

REPORT INFORMATION
  Report Type: Spontaneous
  Country: FR (occurrence: FR)
  Receive Date: 20180601
  Receipt Date: 20180601
  Transmission Date: 20180711
  Serious: Yes (Hospitalization)
  Sender: FDA-Public Use
  Company Number: FR-TEVA-2018-FR-900121

PATIENT
  Age: 81 Year
  Sex: Male
  Weight: 74 kg

DRUGS (6)
  1. OXAZEPAM. [Concomitant]
     Active Substance: OXAZEPAM
     Dosage: 50 MILLIGRAM DAILY;
     Route: 048
  2. COUMADINE 5 MG, COMPRIM? S?CABLE [Concomitant]
     Active Substance: WARFARIN SODIUM
     Indication: ATRIAL FIBRILLATION
     Dosage: 1 DOSAGE FORMS DAILY;
     Route: 048
     Dates: end: 20180115
  3. RISPERIDONE. [Suspect]
     Active Substance: RISPERIDONE
     Indication: ABNORMAL BEHAVIOUR
     Dosage: .5 MILLIGRAM DAILY;
     Route: 048
     Dates: end: 20180115
  4. ZOPICLONE [Concomitant]
     Active Substance: ZOPICLONE
     Dosage: 3.75 MILLIGRAM DAILY;
     Route: 048
  5. ARIPIPRAZOLE. [Suspect]
     Active Substance: ARIPIPRAZOLE
     Indication: DEMENTIA ALZHEIMER^S TYPE
     Dosage: 5 MILLIGRAM DAILY;
     Route: 048
     Dates: start: 20180110, end: 20180113
  6. SOTALOL (CHLORHYDRATE DE) [Concomitant]
     Active Substance: SOTALOL
     Indication: ATRIAL FIBRILLATION
     Dosage: 80 MILLIGRAM DAILY;
     Route: 048

REACTIONS (3)
  - Bradycardia [Recovered/Resolved]
  - Hypothermia [Recovered/Resolved]
  - Neuroleptic malignant syndrome [Recovered/Resolved]

NARRATIVE: CASE EVENT DATE: 20180113
